FAERS Safety Report 9904538 (Version 1)
Quarter: 2014Q1

REPORT INFORMATION
  Report Type: Spontaneous
  Country: FR (occurrence: FR)
  Receive Date: 20140218
  Receipt Date: 20140218
  Transmission Date: 20141002
  Serious: Yes (Death)
  Sender: FDA-Public Use
  Company Number: FR-B.I. PHARMACEUTICALS,INC./RIDGEFIELD-2014-BI-06753FF

PATIENT
  Age: 62 Year
  Sex: Female

DRUGS (7)
  1. PRADAXA [Suspect]
     Indication: ATRIAL FIBRILLATION
     Dosage: 220 MG
     Route: 048
     Dates: start: 201311
  2. CORDARONE 200 MG [Concomitant]
  3. FLECAINE [Concomitant]
  4. PRAVASTATINE 40 MG [Concomitant]
  5. COVERSYL [Concomitant]
  6. AVLOCARDYL [Concomitant]
  7. LASILIX 20 MG [Concomitant]

REACTIONS (1)
  - Death [Fatal]
